FAERS Safety Report 5093320-1 (Version None)
Quarter: 2006Q3

REPORT INFORMATION
  Report Type: 
  Country: None (occurrence: None)
  Receive Date: 20060828
  Receipt Date: 20060815
  Transmission Date: 20061208
  Serious: Yes (Other)
  Sender: FDA-Public Use
  Company Number: 2006100503

PATIENT
  Age: 56 Year
  Sex: Male

DRUGS (10)
  1. METHYLPREDNISOLONE SODIUM SUCCINATE [Suspect]
     Indication: CHRONIC LYMPHOCYTIC LEUKAEMIA
     Dosage: 1 G/M2, INTRAVENOUS
     Route: 042
  2. CAMPATH [Suspect]
     Indication: CHRONIC LYMPHOCYTIC LEUKAEMIA
     Dosage: 1 WK, INTRAVENOUS
     Route: 042
  3. ACYCLOVIR [Concomitant]
  4. ALLOPURINOL [Concomitant]
  5. CHLORPHENIRAMINE (CHLORPHENIRAMINE) [Concomitant]
  6. CIPROFLOXACIN [Concomitant]
  7. SULFAMETHOXAZOLE + TRIMETHOPRIM [Concomitant]
  8. G-CSF (GRANULOCYTE COLONY STIMULATING FACTOR) [Concomitant]
  9. LANSOPRAZOLE [Concomitant]
  10. ACETAMINOPHEN [Concomitant]

REACTIONS (5)
  - CRYPTOGENIC ORGANISING PNEUMONIA [None]
  - DRUG TOXICITY [None]
  - HAEMOGLOBIN DECREASED [None]
  - NEUTROPHIL COUNT DECREASED [None]
  - SINUSITIS [None]
